FAERS Safety Report 24124752 (Version 1)
Quarter: 2024Q3

REPORT INFORMATION
  Report Type: Spontaneous
  Country: RO (occurrence: RO)
  Receive Date: 20240723
  Receipt Date: 20240723
  Transmission Date: 20241017
  Serious: Yes (Hospitalization, Other)
  Sender: CHEPLAPHARM
  Company Number: RO-MLMSERVICE-20240703-PI120268-00136-1

PATIENT
  Age: 68 Year
  Sex: Male

DRUGS (6)
  1. OLANZAPINE [Interacting]
     Active Substance: OLANZAPINE
     Indication: Bipolar disorder
     Dosage: OVER 5 YEARS?DAILY DOSE: 10 MILLIGRAM
  2. OLANZAPINE [Interacting]
     Active Substance: OLANZAPINE
     Indication: Bipolar disorder
     Dosage: RE-INTRODUCTION ON DAY 5?DAILY DOSE: 10 MILLIGRAM
  3. CIPRALEX [Interacting]
     Active Substance: ESCITALOPRAM OXALATE
     Indication: Bipolar disorder
     Dosage: OVER 5 YEARS?DAILY DOSE: 10 MILLIGRAM
  4. CIPRALEX [Interacting]
     Active Substance: ESCITALOPRAM OXALATE
     Indication: Bipolar disorder
     Dosage: RE-INTRODUCTION ON DAY 11?DAILY DOSE: 10 MILLIGRAM
  5. VALPROATE SODIUM [Interacting]
     Active Substance: VALPROATE SODIUM
     Indication: Bipolar disorder
     Dosage: OVER 5 YEARS?DAILY DOSE: 1 GRAM
  6. ALCOHOL [Interacting]
     Active Substance: ALCOHOL

REACTIONS (6)
  - Rhabdomyolysis [Recovered/Resolved]
  - Acute kidney injury [Recovered/Resolved]
  - Pulmonary fibrosis [Unknown]
  - Clostridium colitis [Unknown]
  - Extrapyramidal disorder [Unknown]
  - Orthostatic hypotension [Recovered/Resolved]
